FAERS Safety Report 5576184-9 (Version None)
Quarter: 2007Q4

REPORT INFORMATION
  Report Type: 
  Country: None (occurrence: None)
  Receive Date: 20071228
  Receipt Date: 20071219
  Transmission Date: 20080405
  Serious: Yes (Other)
  Sender: FDA-Public Use
  Company Number: US-ROCHE-537667

PATIENT
  Sex: Female

DRUGS (6)
  1. BONIVA [Suspect]
     Indication: OSTEOPOROSIS
     Dosage: DOSAGE FORM PROVIDED AS 'PREFILLED SYRINGE'
     Route: 042
  2. TAPAZOLE [Concomitant]
     Dosage: DRUG PROVIDED AS 'CAPAZOL'
  3. ASPIRIN [Concomitant]
  4. CALTRATE [Concomitant]
  5. CENTRUM [Concomitant]
  6. ALBUTEROL [Concomitant]

REACTIONS (6)
  - BLOOD PRESSURE INCREASED [None]
  - HEADACHE [None]
  - OSTEONECROSIS [None]
  - PAIN IN JAW [None]
  - PRURITUS GENERALISED [None]
  - TOOTH INJURY [None]
